FAERS Safety Report 19604767 (Version 9)
Quarter: 2023Q1

REPORT INFORMATION
  Report Type: Report from Study
  Country: CA (occurrence: CA)
  Receive Date: 20210724
  Receipt Date: 20230213
  Transmission Date: 20230417
  Serious: Yes (Hospitalization, Other)
  Sender: FDA-Public Use
  Company Number: CA-TAKEDA-2020TUS049295

PATIENT
  Age: 64 Year
  Sex: Male

DRUGS (46)
  1. IXAZOMIB [Suspect]
     Active Substance: IXAZOMIB
     Indication: Plasma cell myeloma
     Dosage: 3 MILLIGRAM
     Route: 048
     Dates: start: 20200529
  2. REVLIMID [Suspect]
     Active Substance: LENALIDOMIDE
     Indication: Plasma cell myeloma
     Dosage: 10 MILLIGRAM, QD
     Route: 065
     Dates: start: 20200529
  3. REVLIMID [Suspect]
     Active Substance: LENALIDOMIDE
     Dosage: 5 MILLIGRAM, QD
     Route: 065
     Dates: start: 20201211
  4. ONDANSETRON [Concomitant]
     Active Substance: ONDANSETRON
     Dosage: 8 MILLIGRAM
     Route: 065
  5. ASPIRIN [Concomitant]
     Active Substance: ASPIRIN
     Dosage: 81 MILLIGRAM, QD
     Route: 065
  6. ACYCLOVIR [Concomitant]
     Active Substance: ACYCLOVIR
     Dosage: 400 MILLIGRAM, BID
     Route: 065
  7. FILGRASTIM [Concomitant]
     Active Substance: FILGRASTIM
     Dosage: 300 MICROGRAM, 2/WEEK
     Route: 058
  8. FILGRASTIM [Concomitant]
     Active Substance: FILGRASTIM
     Dosage: UNK, 2/WEEK
     Route: 065
  9. TYLENOL [Concomitant]
     Active Substance: ACETAMINOPHEN
     Dosage: 1 GRAM, BID
     Route: 065
  10. CODEINE [Concomitant]
     Active Substance: CODEINE
     Dosage: 30 MILLIGRAM
     Route: 065
  11. TOPIRAMATE [Concomitant]
     Active Substance: TOPIRAMATE
     Dosage: 200 MILLIGRAM, BID
     Route: 065
  12. DULOXETINE [Concomitant]
     Active Substance: DULOXETINE
     Dosage: 120 MILLIGRAM, QD
     Route: 065
  13. MIDODRINE [Concomitant]
     Active Substance: MIDODRINE
     Dosage: 10 MILLIGRAM, BID
     Route: 065
  14. MIDODRINE [Concomitant]
     Active Substance: MIDODRINE
     Dosage: 50 MICROGRAM, BID
     Route: 045
  15. DOCUSATE [Concomitant]
     Active Substance: DOCUSATE
     Dosage: 200 MILLIGRAM, BID
     Route: 065
  16. PANTOPRAZOLE MAGNESIUM [Concomitant]
     Active Substance: PANTOPRAZOLE MAGNESIUM
     Dosage: 40 MILLIGRAM, QD
     Route: 065
  17. ACYCLOVIR [Concomitant]
     Active Substance: ACYCLOVIR
     Dosage: 400 MILLIGRAM, Q12H
     Route: 065
  18. LAMOTRIGINE [Concomitant]
     Active Substance: LAMOTRIGINE
     Dosage: 225 MILLIGRAM, BID
     Route: 065
  19. VITAMIN D3 [Concomitant]
     Active Substance: CHOLECALCIFEROL
     Dosage: 3000 INTERNATIONAL UNIT
     Route: 065
  20. OMEGA III [Concomitant]
     Dosage: UNK, QD
     Route: 065
  21. MAGNESIUM OXIDE [Concomitant]
     Active Substance: MAGNESIUM OXIDE
     Dosage: 420 MILLIGRAM, BID
     Route: 065
  22. MINERALS\VITAMINS [Concomitant]
     Active Substance: MINERALS\VITAMINS
     Dosage: UNK, QD
     Route: 065
  23. GLUCOSAMINE [Concomitant]
     Active Substance: GLUCOSAMINE
     Dosage: 500 MILLIGRAM, QD
     Route: 065
  24. SYMBICORT [Concomitant]
     Active Substance: BUDESONIDE\FORMOTEROL FUMARATE DIHYDRATE
     Dosage: UNK, BID
     Route: 065
  25. CLOBAZAM [Concomitant]
     Active Substance: CLOBAZAM
     Dosage: 25 MILLIGRAM, QD
     Route: 065
  26. ALBUTEROL [Concomitant]
     Active Substance: ALBUTEROL
     Dosage: UNK
     Route: 065
  27. ALBUTEROL [Concomitant]
     Active Substance: ALBUTEROL
     Dosage: 25 MILLIGRAM, QID
     Route: 065
  28. SENOKOT-S [Concomitant]
     Active Substance: DOCUSATE SODIUM\SENNOSIDES
     Dosage: 8.6 MILLIGRAM, BID
     Route: 065
  29. POLYETHYLENE GLYCOL 3350 [Concomitant]
     Active Substance: POLYETHYLENE GLYCOL 3350
     Dosage: UNK, QD
     Route: 065
  30. CLARITIN [Concomitant]
     Active Substance: LORATADINE
     Indication: Pain
     Dosage: 10 MILLIGRAM, QD
     Route: 065
  31. CHOLESTYRAMINE [Concomitant]
     Active Substance: CHOLESTYRAMINE
     Indication: Diarrhoea
     Dosage: UNK
     Route: 065
  32. QUETIAPINE [Concomitant]
     Active Substance: QUETIAPINE
     Dosage: 300 MILLIGRAM, QD
     Route: 065
  33. PANTOPRAZOLE SODIUM [Concomitant]
     Active Substance: PANTOPRAZOLE SODIUM
     Dosage: 40 MILLIGRAM, QD
     Route: 065
  34. VITAMIN D [Concomitant]
     Active Substance: VITAMIN D NOS
     Dosage: 1000 INTERNATIONAL UNIT, QD
     Route: 065
  35. MAGNESIUM OXIDE [Concomitant]
     Active Substance: MAGNESIUM OXIDE
     Dosage: 420 MILLIGRAM, BID
     Route: 065
  36. LORAZEPAM [Concomitant]
     Active Substance: LORAZEPAM
     Indication: Seizure
     Dosage: 1 MILLIGRAM
     Route: 060
  37. LORATADINE [Concomitant]
     Active Substance: LORATADINE
     Indication: Bone pain
     Dosage: 10 MILLIGRAM, QD
     Route: 065
  38. ACETAMINOPHEN [Concomitant]
     Active Substance: ACETAMINOPHEN
     Indication: Arthralgia
     Dosage: 1 GRAM, TID
     Route: 065
  39. ACETAMINOPHEN [Concomitant]
     Active Substance: ACETAMINOPHEN
     Dosage: 500 MILLIGRAM, BID
     Route: 065
  40. ACETAMINOPHEN [Concomitant]
     Active Substance: ACETAMINOPHEN
     Dosage: 500 MILLIGRAM, TID
     Route: 065
  41. GRAVOL [Concomitant]
     Active Substance: DIMENHYDRINATE
     Dosage: UNK
     Route: 065
  42. MOMETASONE [Concomitant]
     Active Substance: MOMETASONE
     Dosage: UNK UNK, QD
     Route: 065
  43. CHOLESTYRAMINE [Concomitant]
     Active Substance: CHOLESTYRAMINE
     Dosage: UNK
     Route: 065
  44. OXYCODONE [Concomitant]
     Active Substance: OXYCODONE
     Dosage: 15 MILLIGRAM
     Route: 065
  45. OXYCODONE [Concomitant]
     Active Substance: OXYCODONE
     Dosage: 30 MILLIGRAM
     Route: 065
  46. OXYCODONE [Concomitant]
     Active Substance: OXYCODONE
     Dosage: 60 MILLIGRAM, BID
     Route: 065

REACTIONS (23)
  - Seizure [Recovered/Resolved]
  - Blood creatinine increased [Recovered/Resolved]
  - Asthenia [Unknown]
  - Diarrhoea [Recovering/Resolving]
  - Nausea [Recovering/Resolving]
  - Neutropenia [Unknown]
  - Joint swelling [Not Recovered/Not Resolved]
  - Arthralgia [Not Recovered/Not Resolved]
  - Epistaxis [Unknown]
  - Fatigue [Recovering/Resolving]
  - Mood altered [Not Recovered/Not Resolved]
  - Memory impairment [Not Recovered/Not Resolved]
  - Aphasia [Not Recovered/Not Resolved]
  - Pollakiuria [Unknown]
  - Contusion [Unknown]
  - Dry skin [Recovering/Resolving]
  - Sacral pain [Not Recovered/Not Resolved]
  - Dyspnoea [Unknown]
  - Balance disorder [Not Recovered/Not Resolved]
  - Fall [Not Recovered/Not Resolved]
  - Rash [Not Recovered/Not Resolved]
  - Inappropriate schedule of product administration [Unknown]
  - Product dose omission issue [Unknown]

NARRATIVE: CASE EVENT DATE: 20201208
